FAERS Safety Report 15041737 (Version 3)
Quarter: 2019Q3

REPORT INFORMATION
  Report Type: Spontaneous
  Country: US (occurrence: US)
  Receive Date: 20180621
  Receipt Date: 20190828
  Transmission Date: 20191004
  Serious: Yes (Other)
  Sender: FDA-Public Use
  Company Number: US-SUN PHARMACEUTICAL INDUSTRIES LTD-2018US-176242

PATIENT
  Age: 55 Year
  Sex: Female

DRUGS (2)
  1. PHENYTOIN. [Suspect]
     Active Substance: PHENYTOIN
     Indication: EPILEPSY
     Dosage: UNK
     Route: 065
  2. ATRIPLA [Suspect]
     Active Substance: EFAVIRENZ\EMTRICITABINE\TENOFOVIR DISOPROXIL FUMARATE
     Indication: HIV INFECTION
     Dosage: UNK
     Route: 065

REACTIONS (10)
  - Joint swelling [Unknown]
  - Vertigo [Unknown]
  - Ataxia [Recovered/Resolved]
  - Nystagmus [Unknown]
  - Electrolyte imbalance [Recovering/Resolving]
  - Tenderness [Unknown]
  - Multiple fractures [Unknown]
  - Toxicity to various agents [Recovering/Resolving]
  - Fall [Unknown]
  - Dizziness [Recovered/Resolved]
